FAERS Safety Report 25681397 (Version 1)
Quarter: 2025Q3

REPORT INFORMATION
  Report Type: Spontaneous
  Country: US (occurrence: None)
  Receive Date: 20250813
  Receipt Date: 20250813
  Transmission Date: 20251021
  Serious: Yes (Other)
  Sender: FDA-CTU
  Company Number: None

PATIENT
  Age: 56 Year
  Sex: Female
  Weight: 71.55 kg

DRUGS (7)
  1. SUDAFED SINUS CONGESTION 24 HOUR [Suspect]
     Active Substance: PSEUDOEPHEDRINE HYDROCHLORIDE
     Indication: Sinus congestion
     Dosage: OTHER QUANTITY : 1 TABLET(S);?FREQUENCY : DAILY;?
     Route: 048
     Dates: start: 20250812, end: 20250813
  2. ESTROGENS [Concomitant]
     Active Substance: ESTROGENS
  3. PROGESTERONE [Concomitant]
     Active Substance: PROGESTERONE
  4. MAGNESIUM [Concomitant]
     Active Substance: MAGNESIUM
  5. ALEVE [Concomitant]
     Active Substance: NAPROXEN SODIUM
  6. PEPCID AC [Concomitant]
     Active Substance: FAMOTIDINE
  7. SEMAGLUTIDE [Concomitant]
     Active Substance: SEMAGLUTIDE

REACTIONS (7)
  - Dizziness [None]
  - Nausea [None]
  - Vomiting [None]
  - Palpitations [None]
  - Hyperhidrosis [None]
  - Chills [None]
  - Headache [None]

NARRATIVE: CASE EVENT DATE: 20250812
